FAERS Safety Report 14776774 (Version 4)
Quarter: 2018Q3

REPORT INFORMATION
  Report Type: Spontaneous
  Country: CA (occurrence: CA)
  Receive Date: 20180419
  Receipt Date: 20180710
  Transmission Date: 20181010
  Serious: Yes (Other)
  Sender: FDA-Public Use
  Company Number: CA-ROCHE-2109174

PATIENT
  Age: 41 Year
  Sex: Male

DRUGS (22)
  1. XOLAIR [Suspect]
     Active Substance: OMALIZUMAB
     Route: 058
     Dates: start: 20180406
  2. SYMBICORT [Concomitant]
     Active Substance: BUDESONIDE\FORMOTEROL FUMARATE DIHYDRATE
     Indication: PRODUCT USED FOR UNKNOWN INDICATION
     Dosage: 4 DF, QD
     Route: 055
     Dates: start: 2015
  3. XOLAIR [Suspect]
     Active Substance: OMALIZUMAB
     Route: 058
     Dates: start: 20180222
  4. XOLAIR [Suspect]
     Active Substance: OMALIZUMAB
     Route: 058
     Dates: start: 20180309
  5. XOLAIR [Suspect]
     Active Substance: OMALIZUMAB
     Route: 058
     Dates: start: 20171102
  6. XOLAIR [Suspect]
     Active Substance: OMALIZUMAB
     Route: 058
     Dates: start: 20171201
  7. XOLAIR [Suspect]
     Active Substance: OMALIZUMAB
     Route: 058
     Dates: start: 20180503
  8. VENTOLIN [Concomitant]
     Active Substance: ALBUTEROL SULFATE
     Indication: PRODUCT USED FOR UNKNOWN INDICATION
     Route: 055
     Dates: start: 2000
  9. VENTOLIN [Concomitant]
     Active Substance: ALBUTEROL SULFATE
     Route: 055
  10. AVAMYS [Concomitant]
     Active Substance: FLUTICASONE FUROATE
     Indication: PRODUCT USED FOR UNKNOWN INDICATION
     Dosage: 2 DF, BID
     Route: 045
     Dates: start: 201706
  11. XOLAIR [Suspect]
     Active Substance: OMALIZUMAB
     Route: 058
     Dates: start: 20171228
  12. XOLAIR [Suspect]
     Active Substance: OMALIZUMAB
     Route: 058
     Dates: start: 20180208
  13. XOLAIR [Suspect]
     Active Substance: OMALIZUMAB
     Route: 058
     Dates: start: 20180322
  14. ASMANEX [Concomitant]
     Active Substance: MOMETASONE FUROATE
     Indication: PRODUCT USED FOR UNKNOWN INDICATION
     Dosage: 3 DF, QD
     Route: 055
     Dates: start: 201706
  15. PREDNISONE. [Concomitant]
     Active Substance: PREDNISONE
     Indication: PRODUCT USED FOR UNKNOWN INDICATION
     Dosage: 2 DF, QD
     Route: 048
     Dates: start: 20170728
  16. PREDNISONE. [Concomitant]
     Active Substance: PREDNISONE
     Dosage: IN MORNING
     Route: 065
  17. DILTIAZEM. [Suspect]
     Active Substance: DILTIAZEM
     Indication: ANGINA PECTORIS
     Route: 048
     Dates: start: 201706
  18. ASMANEX [Concomitant]
     Active Substance: MOMETASONE FUROATE
     Dosage: 3 TO 4 TIMES/DAY
     Route: 055
  19. SYMBICORT [Concomitant]
     Active Substance: BUDESONIDE\FORMOTEROL FUMARATE DIHYDRATE
     Dosage: 2 PUFFS, BID (FOR 15 DAYS TO 3 WEEKS)
     Route: 065
  20. SINGULAIR [Concomitant]
     Active Substance: MONTELUKAST SODIUM
     Indication: PRODUCT USED FOR UNKNOWN INDICATION
     Dosage: 1 DF, QD
     Route: 048
     Dates: start: 201706
  21. XOLAIR [Suspect]
     Active Substance: OMALIZUMAB
     Indication: ASTHMA
     Route: 058
     Dates: start: 20171005
  22. SYMBICORT [Concomitant]
     Active Substance: BUDESONIDE\FORMOTEROL FUMARATE DIHYDRATE
     Dosage: 3 DF, (3 TO 4 TIMES /DAY)
     Route: 055

REACTIONS (33)
  - Hyperhidrosis [Unknown]
  - Fear [Unknown]
  - Nasal congestion [Unknown]
  - Photophobia [Unknown]
  - Bone pain [Unknown]
  - Heart rate increased [Unknown]
  - Pain [Unknown]
  - Pallor [Unknown]
  - Headache [Recovered/Resolved]
  - Cough [Not Recovered/Not Resolved]
  - Oxygen saturation decreased [Unknown]
  - Blood pressure diastolic increased [Unknown]
  - Dysphonia [Not Recovered/Not Resolved]
  - Eye pain [Unknown]
  - Angina pectoris [Unknown]
  - Fatigue [Not Recovered/Not Resolved]
  - Malaise [Unknown]
  - Dyspnoea [Recovered/Resolved]
  - Asthma [Not Recovered/Not Resolved]
  - Pruritus [Unknown]
  - Poor quality sleep [Unknown]
  - Movement disorder [Unknown]
  - Vasospasm [Unknown]
  - Dizziness [Unknown]
  - Irritability [Unknown]
  - Dyspnoea exertional [Unknown]
  - Hypoaesthesia [Unknown]
  - Asthenia [Unknown]
  - Neck pain [Unknown]
  - Paraesthesia [Unknown]
  - Bronchospasm [Recovering/Resolving]
  - Myalgia [Unknown]
  - Migraine [Unknown]

NARRATIVE: CASE EVENT DATE: 201710
